FAERS Safety Report 8023067-0 (Version None)
Quarter: 2012Q1

REPORT INFORMATION
  Report Type: 
  Country: None (occurrence: None)
  Receive Date: 20120104
  Receipt Date: 20120103
  Transmission Date: 20120608
  Serious: Yes (Other)
  Sender: FDA-Public Use
  Company Number: US-PFIZER INC-2012001475

PATIENT
  Sex: Male
  Weight: 86.168 kg

DRUGS (3)
  1. SERTRALINE HYDROCHLORIDE [Suspect]
     Indication: DEPRESSION
     Dosage: 50 MG, 1X/DAY
     Route: 048
  2. ALPRAZOLAM [Suspect]
     Indication: PANIC ATTACK
     Dosage: 0.25 MG, 2X/DAY
     Route: 048
  3. IBUPROFEN [Concomitant]
     Indication: PAIN
     Dosage: 200 MG, UNK

REACTIONS (9)
  - VISUAL IMPAIRMENT [None]
  - HYPOKINESIA [None]
  - ABDOMINAL DISCOMFORT [None]
  - MUSCLE SPASMS [None]
  - MONOPLEGIA [None]
  - HYPERPHAGIA [None]
  - MUSCULOSKELETAL STIFFNESS [None]
  - BLOOD GLUCOSE INCREASED [None]
  - PAIN IN EXTREMITY [None]
